FAERS Safety Report 25900241 (Version 1)
Quarter: 2025Q4

REPORT INFORMATION
  Report Type: Spontaneous
  Country: US (occurrence: US)
  Receive Date: 20251009
  Receipt Date: 20251009
  Transmission Date: 20260118
  Serious: No
  Sender: NOVITIUM PHARMA
  Company Number: US-NOVITIUM PHARMA-000092

PATIENT
  Sex: Female

DRUGS (1)
  1. ESTRADIOL [Suspect]
     Active Substance: ESTRADIOL
     Indication: Product used for unknown indication
     Dosage: METERED, STRENGTH: 0.06%

REACTIONS (2)
  - Depressed mood [Unknown]
  - Depressed mood [Unknown]
